FAERS Safety Report 8131644-1 (Version None)
Quarter: 2012Q1

REPORT INFORMATION
  Report Type: 
  Country: None (occurrence: None)
  Receive Date: 20120103
  Receipt Date: 20110828
  Transmission Date: 20120608
  Serious: No
  Sender: FDA-Public Use
  Company Number: AE-2011-001161

PATIENT
  Age: 48 Year
  Sex: Female

DRUGS (6)
  1. ADDERALL (OBETROL) [Concomitant]
  2. RIBAVIRIN [Concomitant]
  3. PRISTIQ [Concomitant]
  4. ATIVAN [Concomitant]
  5. PEGASYS [Concomitant]
  6. INCIVEK [Suspect]
     Dosage: (2 IN 1 D),ORAL
     Route: 048
     Dates: start: 20110820

REACTIONS (5)
  - FEELING HOT [None]
  - DIARRHOEA [None]
  - CONSTIPATION [None]
  - ABDOMINAL PAIN UPPER [None]
  - CHILLS [None]
